FAERS Safety Report 12197589 (Version 2)
Quarter: 2016Q2

REPORT INFORMATION
  Report Type: Spontaneous
  Country: GB (occurrence: GB)
  Receive Date: 20160322
  Receipt Date: 20160609
  Transmission Date: 20160815
  Serious: Yes (Other)
  Sender: FDA-Public Use
  Company Number: GB-AMGEN-GBRSP2016033841

PATIENT
  Age: 94 Year
  Sex: Female
  Weight: 53.5 kg

DRUGS (10)
  1. TAMOXIFEN [Concomitant]
     Active Substance: TAMOXIFEN
  2. AMIODARONE [Concomitant]
     Active Substance: AMIODARONE
  3. PROLIA [Suspect]
     Active Substance: DENOSUMAB
     Indication: PRODUCT USED FOR UNKNOWN INDICATION
     Dosage: UNK
     Route: 065
     Dates: start: 20140225
  4. LANSOPRAZOLE. [Concomitant]
     Active Substance: LANSOPRAZOLE
  5. IRBESARTAN. [Concomitant]
     Active Substance: IRBESARTAN
  6. CLOPIDOGREL [Concomitant]
     Active Substance: CLOPIDOGREL BISULFATE
  7. CITALOPRAM [Concomitant]
     Active Substance: CITALOPRAM HYDROBROMIDE
  8. TRAMADOL. [Concomitant]
     Active Substance: TRAMADOL
  9. VERAPAMIL [Concomitant]
     Active Substance: VERAPAMIL HYDROCHLORIDE
  10. ADCAL D3 [Concomitant]
     Active Substance: CALCIUM CARBONATE\CHOLECALCIFEROL

REACTIONS (1)
  - Femoral neck fracture [Unknown]

NARRATIVE: CASE EVENT DATE: 20160425
